FAERS Safety Report 12010675 (Version 1)
Quarter: 2016Q1

REPORT INFORMATION
  Report Type: Spontaneous
  Country: US (occurrence: US)
  Receive Date: 20160205
  Receipt Date: 20160205
  Transmission Date: 20160526
  Serious: No
  Sender: FDA-Public Use
  Company Number: US-FRI-1000082331

PATIENT
  Sex: Female

DRUGS (3)
  1. FETZIMA [Suspect]
     Active Substance: LEVOMILNACIPRAN HYDROCHLORIDE
  2. ASPIRIN. [Interacting]
     Active Substance: ASPIRIN
     Indication: MYOCARDIAL INFARCTION
  3. DIURETIC [Interacting]
     Active Substance: UNSPECIFIED INGREDIENT

REACTIONS (2)
  - Labelled drug-drug interaction medication error [Not Recovered/Not Resolved]
  - Headache [Not Recovered/Not Resolved]
